FAERS Safety Report 10371589 (Version 2)
Quarter: 2014Q3

REPORT INFORMATION
  Report Type: Report from Study
  Country: GB (occurrence: GB)
  Receive Date: 20140808
  Receipt Date: 20140808
  Transmission Date: 20150326
  Serious: Yes (Death, Other)
  Sender: FDA-Public Use
  Company Number: GB-ABBVIE-11P-167-0700487-00

PATIENT
  Age: 78 Year
  Sex: Male

DRUGS (2)
  1. HUMIRA [Suspect]
     Active Substance: ADALIMUMAB
     Indication: RHEUMATOID ARTHRITIS
     Route: 058
     Dates: start: 20031215, end: 20100319
  2. HYDROXYCHLOROQUINE [Concomitant]
     Active Substance: HYDROXYCHLOROQUINE
     Indication: RHEUMATOID ARTHRITIS

REACTIONS (7)
  - Cerebrovascular accident [Unknown]
  - Laceration [Unknown]
  - Completed suicide [Fatal]
  - Laryngeal injury [Unknown]
  - Arterial injury [Unknown]
  - Hypoxic-ischaemic encephalopathy [Fatal]
  - Asphyxia [Fatal]

NARRATIVE: CASE EVENT DATE: 20100331
